FAERS Safety Report 26135282 (Version 1)
Quarter: 2025Q4

REPORT INFORMATION
  Report Type: Spontaneous
  Country: US (occurrence: None)
  Receive Date: 20251208
  Receipt Date: 20251208
  Transmission Date: 20260119
  Serious: Yes (Other)
  Sender: FDA-CTU
  Company Number: None

PATIENT
  Age: 52 Year
  Sex: Female
  Weight: 76.5 kg

DRUGS (2)
  1. ZEPBOUND [Suspect]
     Active Substance: TIRZEPATIDE
     Indication: Weight decreased
     Dosage: 4 INJECION9S) 1/WEEK INJECTED INTO ABDOMEN AREA
     Route: 050
     Dates: start: 20251205
  2. Levothyroxin 100 mcg 6 days/week [Concomitant]

REACTIONS (1)
  - Allodynia [None]

NARRATIVE: CASE EVENT DATE: 20251207
